FAERS Safety Report 5575502-5 (Version None)
Quarter: 2007Q4

REPORT INFORMATION
  Report Type: 
  Country: None (occurrence: None)
  Receive Date: 20071226
  Receipt Date: 20071211
  Transmission Date: 20080405
  Serious: Yes (Other)
  Sender: FDA-Public Use
  Company Number: 021861

PATIENT
  Age: 63 Year
  Sex: Male
  Weight: 118 kg

DRUGS (5)
  1. LITHIUM CARBONATE [Suspect]
     Indication: BIPOLAR DISORDER
     Dosage: 450 MG, QD,
  2. VALSARTAN [Concomitant]
  3. BUPROPION HCL [Concomitant]
  4. IMIPRAMINE [Concomitant]
  5. ABLUTEROL               (SALBUTAMOL) [Concomitant]

REACTIONS (7)
  - BLOOD MAGNESIUM INCREASED [None]
  - HYPERCALCAEMIA [None]
  - HYPERPARATHYROIDISM [None]
  - OBESITY [None]
  - PROSTATIC SPECIFIC ANTIGEN INCREASED [None]
  - RENAL CYST [None]
  - RENAL FAILURE CHRONIC [None]
